FAERS Safety Report 5181085-4 (Version None)
Quarter: 2006Q4

REPORT INFORMATION
  Report Type: 
  Country: None (occurrence: None)
  Receive Date: 20061218
  Receipt Date: 20061218
  Transmission Date: 20070319
  Serious: Yes (Life-Threatening, Other)
  Sender: FDA-Public Use
  Company Number: None

PATIENT
  Age: 47 Year
  Sex: Male
  Weight: 120.2032 kg

DRUGS (4)
  1. PAXIL [Suspect]
     Indication: ANXIETY
     Dosage: 1 PILL  DAILY PO
     Route: 048
     Dates: start: 19970101, end: 20060401
  2. PAXIL [Suspect]
     Indication: DEPRESSION
     Dosage: 1 PILL  DAILY PO
     Route: 048
     Dates: start: 19970101, end: 20060401
  3. PAXIL [Suspect]
     Indication: ANXIETY
     Dosage: 1 PILL DAILY PO
     Route: 048
     Dates: start: 20060501, end: 20061118
  4. PAXIL [Suspect]
     Indication: DEPRESSION
     Dosage: 1 PILL DAILY PO
     Route: 048
     Dates: start: 20060501, end: 20061118

REACTIONS (6)
  - ANGER [None]
  - DISTURBANCE IN ATTENTION [None]
  - DIZZINESS [None]
  - DRUG WITHDRAWAL SYNDROME [None]
  - PAIN [None]
  - SUICIDAL IDEATION [None]
